FAERS Safety Report 9105102 (Version 6)
Quarter: 2013Q3

REPORT INFORMATION
  Report Type: Report from Study
  Country: CA (occurrence: CA)
  Receive Date: 20130115
  Receipt Date: 20130929
  Transmission Date: 20140515
  Serious: Yes (Death, Hospitalization, Other)
  Sender: FDA-Public Use
  Company Number: CA-ROCHE-1112442

PATIENT
  Age: 57 Year
  Sex: Female
  Weight: 80.7 kg

DRUGS (10)
  1. AVASTIN [Suspect]
     Indication: COLORECTAL CANCER
     Route: 042
     Dates: start: 20120625, end: 20130429
  2. MICARDIS [Concomitant]
  3. NEXIUM [Concomitant]
  4. RANITIDINE [Concomitant]
  5. VITAMIN B12 [Concomitant]
  6. STEMETIL [Concomitant]
  7. ZOFRAN [Concomitant]
  8. FOLINIC ACID [Concomitant]
  9. 5-FU [Concomitant]
  10. IRINOTECAN [Concomitant]

REACTIONS (9)
  - Disease progression [Fatal]
  - White blood cell count decreased [Unknown]
  - Hydronephrosis [Not Recovered/Not Resolved]
  - Pulmonary embolism [Not Recovered/Not Resolved]
  - Renal abscess [Unknown]
  - Renal neoplasm [Unknown]
  - Aneurysm [Unknown]
  - Pain in extremity [Unknown]
  - Cough [Not Recovered/Not Resolved]
